FAERS Safety Report 6054264-1 (Version None)
Quarter: 2009Q1

REPORT INFORMATION
  Report Type: 
  Country: None (occurrence: None)
  Receive Date: 20090127
  Receipt Date: 20090121
  Transmission Date: 20090719
  Serious: Yes (Hospitalization, Other)
  Sender: FDA-Public Use
  Company Number: US-AMGEN-US279304

PATIENT
  Sex: Female
  Weight: 92.6 kg

DRUGS (15)
  1. ARANESP [Suspect]
     Indication: ANAEMIA OF MALIGNANT DISEASE
     Route: 065
     Dates: start: 20070223, end: 20070719
  2. EPOGEN [Suspect]
     Indication: ANAEMIA OF MALIGNANT DISEASE
     Route: 065
     Dates: start: 19970203, end: 19980101
  3. RELAFEN [Concomitant]
     Route: 065
  4. VICODIN [Concomitant]
     Route: 065
  5. ZANTAC [Concomitant]
     Route: 065
  6. ASPIRIN [Concomitant]
     Route: 065
  7. PRAVACHOL [Concomitant]
     Route: 065
  8. TOPROL-XL [Concomitant]
     Route: 065
  9. PRINIVIL [Concomitant]
     Route: 065
  10. BENICAR [Concomitant]
     Route: 065
  11. ACTONEL [Concomitant]
     Route: 065
  12. SYNTHROID [Concomitant]
     Route: 065
  13. INDOMETIN [Concomitant]
     Route: 065
  14. RITUXIMAB [Concomitant]
     Route: 065
     Dates: start: 20030301
  15. ZEVALIN [Concomitant]
     Route: 065
     Dates: start: 20030101

REACTIONS (1)
  - APLASIA PURE RED CELL [None]
